FAERS Safety Report 9400815 (Version 1)
Quarter: 2013Q3

REPORT INFORMATION
  Report Type: Spontaneous
  Country: TR (occurrence: TR)
  Receive Date: 20130715
  Receipt Date: 20130715
  Transmission Date: 20140515
  Serious: Yes (Other)
  Sender: FDA-Public Use
  Company Number: TR-WATSON-2013-12045

PATIENT
  Age: 83 Year
  Sex: Male

DRUGS (1)
  1. HALOPERIDOL (UNKNOWN) [Suspect]
     Indication: DELIRIUM
     Dosage: 1 MG, TID
     Route: 065

REACTIONS (1)
  - Myoclonus [Recovered/Resolved]
